FAERS Safety Report 12688380 (Version 2)
Quarter: 2016Q4

REPORT INFORMATION
  Report Type: Spontaneous
  Country: RU (occurrence: RU)
  Receive Date: 20160825
  Receipt Date: 20161104
  Transmission Date: 20170207
  Serious: Yes (Hospitalization, Other)
  Sender: FDA-Public Use
  Company Number: RU-BAYER-2016-165827

PATIENT
  Age: 43 Year
  Sex: Female

DRUGS (1)
  1. QLAIRA [Suspect]
     Active Substance: DIENOGEST\ESTRADIOL VALERATE
     Indication: CONTRACEPTION
     Dosage: UNK
     Route: 048
     Dates: start: 2014

REACTIONS (5)
  - Malignant melanoma [None]
  - Metastases to lung [None]
  - Paraplegia [None]
  - Hemiplegia [None]
  - Metastases to central nervous system [None]

NARRATIVE: CASE EVENT DATE: 20160822
